FAERS Safety Report 12120246 (Version 1)
Quarter: 2016Q1

REPORT INFORMATION
  Report Type: Spontaneous
  Country: CN (occurrence: CN)
  Receive Date: 20160226
  Receipt Date: 20160226
  Transmission Date: 20160526
  Serious: Yes (Other)
  Sender: FDA-Public Use
  Company Number: CN-BAYER-2016-030946

PATIENT
  Age: 77 Year
  Sex: Male

DRUGS (1)
  1. MOXIFLOXACIN IV [Suspect]
     Active Substance: MOXIFLOXACIN
     Dosage: UNK
     Route: 041

REACTIONS (1)
  - Generalised tonic-clonic seizure [Recovering/Resolving]
